FAERS Safety Report 5527849-6 (Version None)
Quarter: 2007Q4

REPORT INFORMATION
  Report Type: 
  Country: None (occurrence: None)
  Receive Date: 20071126
  Receipt Date: 20071126
  Transmission Date: 20080405
  Serious: Yes (Other)
  Sender: FDA-Public Use
  Company Number: None

PATIENT
  Age: 46 Year
  Sex: Female
  Weight: 61.2356 kg

DRUGS (1)
  1. CHANTIX [Suspect]
     Indication: SMOKING CESSATION THERAPY
     Dosage: 1 MG BID PO
     Route: 048
     Dates: start: 20061114, end: 20070305

REACTIONS (9)
  - ASTHENIA [None]
  - COMPULSIONS [None]
  - DECREASED INTEREST [None]
  - DEPRESSION [None]
  - EATING DISORDER [None]
  - FEELING ABNORMAL [None]
  - ILL-DEFINED DISORDER [None]
  - SOMNOLENCE [None]
  - SUICIDAL IDEATION [None]
